FAERS Safety Report 5988655-1 (Version None)
Quarter: 2008Q4

REPORT INFORMATION
  Report Type: 
  Country: None (occurrence: None)
  Receive Date: 20081210
  Receipt Date: 20081202
  Transmission Date: 20090506
  Serious: Yes (Hospitalization, Other)
  Sender: FDA-Public Use
  Company Number: US-PURDUE-USA_2008_0036076

PATIENT
  Age: 83 Year
  Sex: Female

DRUGS (3)
  1. OXYCONTIN [Suspect]
     Indication: BACK PAIN
     Dosage: 1 TABLET, SEE TEXT
  2. VICODIN [Concomitant]
     Indication: BREAKTHROUGH PAIN
  3. CYMBALTA [Concomitant]
     Indication: DEPRESSION
     Dates: start: 20080901

REACTIONS (5)
  - CARDIAC PACEMAKER INSERTION [None]
  - DEPRESSION [None]
  - DRUG DEPENDENCE [None]
  - DRUG WITHDRAWAL SYNDROME [None]
  - RENAL FAILURE [None]
